FAERS Safety Report 7367656-5 (Version None)
Quarter: 2011Q1

REPORT INFORMATION
  Report Type: 
  Country: None (occurrence: None)
  Receive Date: 20110322
  Receipt Date: 20110321
  Transmission Date: 20110831
  Serious: Yes (Life-Threatening, Hospitalization, Other)
  Sender: FDA-Public Use
  Company Number: IT-PFIZER INC-2011061317

PATIENT
  Age: 33 Year
  Sex: Male

DRUGS (3)
  1. DEPAKENE [Suspect]
     Dosage: 300 MG, UNK
     Dates: start: 20061024, end: 20110312
  2. REBIF [Suspect]
     Dosage: 44 UG, ALTERNATE DAY
     Route: 058
     Dates: start: 20080403, end: 20110306
  3. EFFEXOR [Suspect]
     Dosage: 75 MG, 1X/DAY
     Route: 048
     Dates: start: 20030101, end: 20110312

REACTIONS (4)
  - CEREBRAL HAEMORRHAGE [None]
  - HYDROCEPHALUS [None]
  - RELAPSING-REMITTING MULTIPLE SCLEROSIS [None]
  - THROMBOCYTOPENIA [None]
